FAERS Safety Report 10808167 (Version 1)
Quarter: 2015Q1

REPORT INFORMATION
  Report Type: Report from Study
  Country: US (occurrence: US)
  Receive Date: 20150217
  Receipt Date: 20150217
  Transmission Date: 20150721
  Serious: No
  Sender: FDA-Public Use
  Company Number: US-ABBVIE-14K-163-1256481-00

PATIENT
  Age: 35 Year
  Sex: Female

DRUGS (5)
  1. VENLAFAXINE HCL [Concomitant]
     Active Substance: VENLAFAXINE HYDROCHLORIDE
     Indication: PRODUCT USED FOR UNKNOWN INDICATION
  2. HUMIRA [Suspect]
     Active Substance: ADALIMUMAB
     Dates: start: 201404, end: 201404
  3. HUMIRA [Suspect]
     Active Substance: ADALIMUMAB
     Indication: COLITIS ULCERATIVE
     Dates: start: 20140321, end: 20140321
  4. HUMIRA [Suspect]
     Active Substance: ADALIMUMAB
     Dates: start: 2014
  5. LAMICTAL [Concomitant]
     Active Substance: LAMOTRIGINE
     Indication: PRODUCT USED FOR UNKNOWN INDICATION

REACTIONS (7)
  - Oropharyngeal pain [Unknown]
  - Oropharyngeal pain [Recovered/Resolved]
  - Sputum discoloured [Unknown]
  - Dyspnoea [Recovered/Resolved]
  - Chest discomfort [Recovered/Resolved]
  - Productive cough [Unknown]
  - Chest discomfort [Unknown]

NARRATIVE: CASE EVENT DATE: 201406
